FAERS Safety Report 4612983-5 (Version None)
Quarter: 2005Q1

REPORT INFORMATION
  Report Type: 
  Country: None (occurrence: None)
  Receive Date: 20050318
  Receipt Date: 20050307
  Transmission Date: 20050727
  Serious: Yes (Hospitalization)
  Sender: FDA-Public Use
  Company Number: US-JNJFOC-20041203824

PATIENT
  Sex: Female
  Weight: 68.49 kg

DRUGS (14)
  1. INFLIXIMAB [Suspect]
     Route: 042
  2. INFLIXIMAB [Suspect]
     Indication: CROHN'S DISEASE
     Route: 042
  3. PREDNISONE [Suspect]
     Indication: CROHN'S DISEASE
     Route: 049
  4. IMURAN [Suspect]
     Indication: CROHN'S DISEASE
     Route: 049
  5. DYAZIDE [Concomitant]
     Route: 049
  6. DYAZIDE [Concomitant]
     Indication: FLUID RETENTION
     Dosage: 37.5/25 MG
     Route: 049
  7. TRAZADONE [Concomitant]
     Indication: INSOMNIA
     Route: 049
  8. LORTAB [Concomitant]
     Route: 049
  9. LORTAB [Concomitant]
     Indication: ABDOMINAL PAIN
     Route: 049
  10. LEVLITE [Concomitant]
     Route: 049
  11. LEVLITE [Concomitant]
     Route: 049
  12. REGLAN [Concomitant]
     Indication: NAUSEA
     Route: 049
  13. TYLENOL [Concomitant]
     Indication: ARTHRITIS
     Dosage: 1-2 TABS
     Route: 049
  14. PROTONIX [Concomitant]
     Route: 049

REACTIONS (2)
  - CROHN'S DISEASE [None]
  - HISTOPLASMOSIS DISSEMINATED [None]
